FAERS Safety Report 9187667 (Version 1)
Quarter: 2013Q1

REPORT INFORMATION
  Report Type: Spontaneous
  Country: BR (occurrence: BR)
  Receive Date: 20130325
  Receipt Date: 20130325
  Transmission Date: 20140127
  Serious: Yes (Death)
  Sender: FDA-Public Use
  Company Number: BR-PFIZER INC-2013027814

PATIENT
  Age: 53 Year
  Sex: Female
  Weight: 49 kg

DRUGS (2)
  1. SUTENT [Suspect]
     Indication: RENAL CELL CARCINOMA
     Dosage: 50 MG, 1X/DAY, CYCLE 4 FOR 2
     Route: 048
     Dates: start: 20120105
  2. PROCIMAX [Concomitant]
     Dosage: 1 TABLET AT NIGHT

REACTIONS (2)
  - Death [Fatal]
  - Skin depigmentation [Unknown]
